FAERS Safety Report 6073837-3 (Version None)
Quarter: 2009Q1

REPORT INFORMATION
  Report Type: 
  Country: None (occurrence: None)
  Receive Date: 20090211
  Receipt Date: 20090206
  Transmission Date: 20090719
  Serious: Yes (Life-Threatening, Hospitalization, Other)
  Sender: FDA-Public Use
  Company Number: FR-BRISTOL-MYERS SQUIBB COMPANY-14498489

PATIENT
  Age: 81 Year
  Sex: Female

DRUGS (10)
  1. GLUCOPHAGE [Suspect]
     Indication: TYPE 2 DIABETES MELLITUS
     Route: 048
     Dates: start: 20080613, end: 20080720
  2. ARIMIDEX [Concomitant]
  3. XYZAL [Concomitant]
  4. LASILIX [Concomitant]
  5. ZYLORIC [Concomitant]
  6. TAHOR [Concomitant]
  7. DIASTABOL [Concomitant]
  8. SINTROM [Concomitant]
  9. DIANTALVIC [Concomitant]
  10. VALSARTAN [Concomitant]

REACTIONS (5)
  - DIARRHOEA [None]
  - HYPERGLYCAEMIA [None]
  - LACTIC ACIDOSIS [None]
  - RENAL FAILURE [None]
  - VOMITING [None]
